FAERS Safety Report 7812903-6 (Version None)
Quarter: 2011Q4

REPORT INFORMATION
  Report Type: 
  Country: None (occurrence: None)
  Receive Date: 20111011
  Receipt Date: 20110929
  Transmission Date: 20120403
  Serious: Yes (Hospitalization)
  Sender: FDA-Public Use
  Company Number: B0752970A

PATIENT
  Age: 3 Month

DRUGS (1)
  1. PROPRANOLOL HCL [Suspect]
     Indication: HAEMANGIOMA

REACTIONS (2)
  - HYPOTENSION [None]
  - BRONCHIAL HYPERREACTIVITY [None]
